FAERS Safety Report 4986578-8 (Version None)
Quarter: 2006Q2

REPORT INFORMATION
  Report Type: 
  Country: None (occurrence: None)
  Receive Date: 20060428
  Receipt Date: 20051222
  Transmission Date: 20061013
  Serious: No
  Sender: FDA-Public Use
  Company Number: US-GLAXOSMITHKLINE-A0586824A

PATIENT
  Sex: Female

DRUGS (2)
  1. VENTOLIN [Suspect]
     Dosage: 1SPR AS REQUIRED
     Route: 055
  2. PULMICORT [Concomitant]

REACTIONS (1)
  - DRUG INEFFECTIVE [None]
